FAERS Safety Report 17839700 (Version 1)
Quarter: 2020Q2

REPORT INFORMATION
  Report Type: Report from Study
  Country: US (occurrence: US)
  Receive Date: 20200529
  Receipt Date: 20200529
  Transmission Date: 20200714
  Serious: Yes (Life-Threatening, Hospitalization)
  Sender: FDA-Public Use
  Company Number: US-MYLANLABS-2020M1052022

PATIENT

DRUGS (4)
  1. PROPOFOL. [Suspect]
     Active Substance: PROPOFOL
     Indication: GENERAL ANAESTHESIA
     Dosage: MOTHER^S DOSE: 100 MCG/ KG/MIN
     Route: 064
  2. REMIFENTANIL [Suspect]
     Active Substance: REMIFENTANIL
     Indication: GENERAL ANAESTHESIA
     Dosage: MOTHER^S DOSE: 0.1 MCG/ KG/MIN
     Route: 064
  3. TRIAMCINOLONE [Suspect]
     Active Substance: TRIAMCINOLONE
     Indication: TRACHEAL STENOSIS
     Route: 064
  4. LORAZEPAM. [Suspect]
     Active Substance: LORAZEPAM
     Indication: SEIZURE
     Route: 064

REACTIONS (3)
  - Toxicity to various agents [Recovered/Resolved]
  - Foetal exposure during pregnancy [Recovered/Resolved]
  - Maternal drugs affecting foetus [Recovered/Resolved]
